FAERS Safety Report 8030735-3 (Version None)
Quarter: 2012Q1

REPORT INFORMATION
  Report Type: 
  Country: None (occurrence: None)
  Receive Date: 20120109
  Receipt Date: 20120104
  Transmission Date: 20120608
  Serious: Yes (Life-Threatening, Hospitalization)
  Sender: FDA-Public Use
  Company Number: US-JNJFOC-20111200602

PATIENT
  Age: 20 Year
  Sex: Female
  Weight: 50.8 kg

DRUGS (2)
  1. ZYPREXA [Concomitant]
     Indication: BIPOLAR DISORDER
     Dosage: 5-10 MG/HS
     Route: 065
  2. INVEGA SUSTENNA [Suspect]
     Indication: BIPOLAR DISORDER
     Route: 030
     Dates: start: 20111123, end: 20111123

REACTIONS (2)
  - HYPERSENSITIVITY [None]
  - EXTRAPYRAMIDAL DISORDER [None]
